FAERS Safety Report 6969122-5 (Version None)
Quarter: 2010Q3

REPORT INFORMATION
  Report Type: 
  Country: None (occurrence: None)
  Receive Date: 20100907
  Receipt Date: 20100826
  Transmission Date: 20110219
  Serious: Yes (Hospitalization)
  Sender: FDA-Public Use
  Company Number: GXKR2010US09719

PATIENT
  Age: 5 Week
  Sex: Female

DRUGS (4)
  1. PROPRANOLOL [Suspect]
     Indication: HAEMANGIOMA
     Dosage: 1 MG/KG/DAY
     Route: 048
  2. PROPRANOLOL [Suspect]
     Dosage: TITRATED TO 2 MG/KG 3 TIMES DAILY OVER 4 MONTHS
     Route: 048
  3. PROPRANOLOL [Suspect]
     Dosage: 1.3 MG/KG/DAY
     Route: 048
  4. PROPRANOLOL [Suspect]
     Dosage: 2 MG/KG/DAY 3 TIMES DAILY
     Route: 048

REACTIONS (4)
  - ASTHENIA [None]
  - HYPERVENTILATION [None]
  - HYPOGLYCAEMIA [None]
  - PALLOR [None]
